FAERS Safety Report 13563988 (Version 1)
Quarter: 2017Q2

REPORT INFORMATION
  Report Type: Spontaneous
  Country: FR (occurrence: FR)
  Receive Date: 20170519
  Receipt Date: 20170519
  Transmission Date: 20170830
  Serious: Yes (Life-Threatening)
  Sender: FDA-Public Use
  Company Number: FR-ASTRAZENECA-2017SE52061

PATIENT
  Age: 76 Year
  Sex: Male

DRUGS (8)
  1. CLAFORAN [Concomitant]
     Active Substance: CEFOTAXIME SODIUM
  2. BRILIQUE [Suspect]
     Active Substance: TICAGRELOR
     Indication: MYOCARDIAL INFARCTION
     Route: 048
  3. KARDEGIC [Concomitant]
     Active Substance: ASPIRIN LYSINE
     Indication: MYOCARDIAL INFARCTION
  4. INSULIN [Concomitant]
     Active Substance: INSULIN NOS
  5. DIFFU K [Concomitant]
     Active Substance: POTASSIUM CHLORIDE
  6. INEXIUM [Suspect]
     Active Substance: ESOMEPRAZOLE
     Route: 048
  7. AMOXICILLIN. [Concomitant]
     Active Substance: AMOXICILLIN
  8. LASILIX [Concomitant]
     Active Substance: FUROSEMIDE

REACTIONS (1)
  - Thrombocytopenia [Not Recovered/Not Resolved]

NARRATIVE: CASE EVENT DATE: 2017
